FAERS Safety Report 11734504 (Version 1)
Quarter: 2015Q4

REPORT INFORMATION
  Report Type: Spontaneous
  Country: US (occurrence: None)
  Receive Date: 20151112
  Receipt Date: 20151112
  Transmission Date: 20160304
  Serious: Yes (Other)
  Sender: FDA-Public Use
  Company Number: None

PATIENT
  Age: 71 Year
  Sex: Male

DRUGS (1)
  1. CAPECITABINE 500 MG TEVA PHARMACEUTICALS USA INC [Suspect]
     Active Substance: CAPECITABINE
     Indication: BREAST CANCER
     Dosage: 500 MAG TABS 3 BID ORAL
     Route: 048
     Dates: start: 20150818

REACTIONS (2)
  - Palmar-plantar erythrodysaesthesia syndrome [None]
  - Skin exfoliation [None]

NARRATIVE: CASE EVENT DATE: 20150928
